FAERS Safety Report 5866848-1 (Version None)
Quarter: 2008Q3

REPORT INFORMATION
  Report Type: 
  Country: None (occurrence: None)
  Receive Date: 20080902
  Receipt Date: 20080820
  Transmission Date: 20090109
  Serious: Yes (Hospitalization)
  Sender: FDA-Public Use
  Company Number: GB-ROCHE-581983

PATIENT
  Age: 31 Year
  Sex: Female

DRUGS (13)
  1. MYCOPHENOLATE MOFETIL [Suspect]
     Indication: STEM CELL TRANSPLANT
     Route: 065
  2. MYCOPHENOLATE MOFETIL [Suspect]
     Dosage: DOSE INCREASED.
     Route: 065
  3. CYCLOSPORINE [Suspect]
     Route: 065
  4. CYCLOSPORINE [Suspect]
     Dosage: DOSE INCREASED.
     Route: 065
  5. RIFAMPICIN [Suspect]
     Indication: DRUG USE FOR UNKNOWN INDICATION
     Route: 065
  6. RIFAMPICIN [Suspect]
     Dosage: DOSE INCREASED.
     Route: 065
  7. ALEMTUZUMAB [Concomitant]
     Indication: STEM CELL TRANSPLANT
  8. BUSULFAN [Concomitant]
     Indication: STEM CELL TRANSPLANT
  9. CYCLOSPORINE [Concomitant]
     Indication: STEM CELL TRANSPLANT
  10. CYTARABINE [Concomitant]
     Indication: STEM CELL TRANSPLANT
  11. FLUDARABINE [Concomitant]
     Indication: STEM CELL TRANSPLANT
  12. NEUPOGEN [Concomitant]
     Indication: STEM CELL TRANSPLANT
  13. IDARUBICIN HCL [Concomitant]
     Indication: STEM CELL TRANSPLANT

REACTIONS (21)
  - ABDOMINAL DISTENSION [None]
  - ABDOMINAL MASS [None]
  - ABDOMINAL PAIN [None]
  - ACID FAST BACILLI INFECTION [None]
  - BLOOD ALKALINE PHOSPHATASE INCREASED [None]
  - BLOOD BILIRUBIN INCREASED [None]
  - C-REACTIVE PROTEIN INCREASED [None]
  - CSF BACTERIA IDENTIFIED [None]
  - GASTROINTESTINAL NECROSIS [None]
  - HEPATITIS [None]
  - HYPOTENSION [None]
  - ILEUS [None]
  - IMMUNOSUPPRESSANT DRUG LEVEL DECREASED [None]
  - LIVER FUNCTION TEST ABNORMAL [None]
  - LOSS OF CONSCIOUSNESS [None]
  - NAUSEA [None]
  - PURULENCE [None]
  - PYREXIA [None]
  - SYSTEMIC INFLAMMATORY RESPONSE SYNDROME [None]
  - TUBERCULOSIS [None]
  - VOMITING [None]
